FAERS Safety Report 25939459 (Version 2)
Quarter: 2025Q4

REPORT INFORMATION
  Report Type: Spontaneous
  Country: US (occurrence: US)
  Receive Date: 20251020
  Receipt Date: 20251107
  Transmission Date: 20260117
  Serious: Yes (Life-Threatening, Hospitalization)
  Sender: TEVA
  Company Number: US-TEVA-VS-3381939

PATIENT
  Age: 60 Year
  Sex: Female

DRUGS (6)
  1. FLUOROURACIL [Suspect]
     Active Substance: FLUOROURACIL
     Indication: Adenocarcinoma pancreas
     Dosage: 5-FU, MFOLFIRINOX REGIMEN
     Route: 065
  2. LEUCOVORIN [Concomitant]
     Active Substance: LEUCOVORIN\LEUCOVORIN CALCIUM
     Indication: Adenocarcinoma pancreas
     Dosage: MFOLFIRINOX REGIMEN
     Route: 065
  3. IRINOTECAN [Concomitant]
     Active Substance: IRINOTECAN
     Indication: Adenocarcinoma pancreas
     Dosage: MFOLFIRINOX REGIMEN
     Route: 065
  4. DILTIAZEM [Concomitant]
     Active Substance: DILTIAZEM
     Indication: Hypertension
     Route: 065
  5. NIFEDIPINE [Concomitant]
     Active Substance: NIFEDIPINE
     Indication: Hypertension
     Dosage: 30-60 MG
     Route: 065
  6. OXALIPLATIN [Concomitant]
     Active Substance: OXALIPLATIN
     Indication: Adenocarcinoma pancreas
     Dosage: MFOLFIRINOX REGIMEN
     Route: 065

REACTIONS (7)
  - Myocardial infarction [Unknown]
  - Electrocardiogram ST segment depression [Unknown]
  - Ejection fraction decreased [Recovering/Resolving]
  - Arteriospasm coronary [Recovered/Resolved]
  - Myocardial ischaemia [Unknown]
  - Electrocardiogram ST segment elevation [Unknown]
  - Myocardial stunning [Recovered/Resolved]
